FAERS Safety Report 25021349 (Version 1)
Quarter: 2025Q1

REPORT INFORMATION
  Report Type: Report from Study
  Country: US (occurrence: US)
  Receive Date: 20250228
  Receipt Date: 20250228
  Transmission Date: 20250409
  Serious: No
  Sender: SANDOZ
  Company Number: US-SANDOZ-SDZ2025US003698

PATIENT
  Sex: Female

DRUGS (4)
  1. OMNITROPE [Suspect]
     Active Substance: SOMATROPIN
     Route: 058
     Dates: start: 20250118
  2. OMNITROPE [Suspect]
     Active Substance: SOMATROPIN
     Route: 058
     Dates: start: 20250118
  3. OMNITROPE [Suspect]
     Active Substance: SOMATROPIN
     Indication: Turner^s syndrome
     Route: 058
     Dates: start: 20250117
  4. OMNITROPE [Suspect]
     Active Substance: SOMATROPIN
     Indication: Turner^s syndrome
     Route: 058
     Dates: start: 20250117

REACTIONS (4)
  - Fear of injection [Not Recovered/Not Resolved]
  - Headache [Unknown]
  - Incorrect dose administered [Unknown]
  - Device leakage [Unknown]

NARRATIVE: CASE EVENT DATE: 20250101
